FAERS Safety Report 6576349-3 (Version None)
Quarter: 2010Q1

REPORT INFORMATION
  Report Type: 
  Country: None (occurrence: None)
  Receive Date: 20100210
  Receipt Date: 20100202
  Transmission Date: 20100710
  Serious: Yes (Other)
  Sender: FDA-Public Use
  Company Number: AT-JNJFOC-20100201975

PATIENT
  Age: 72 Year
  Sex: Female

DRUGS (6)
  1. FENTANYL CITRATE [Suspect]
     Indication: BREAKTHROUGH PAIN
     Route: 062
  2. FENTANYL CITRATE [Suspect]
     Route: 062
  3. HYDROMORPHONE HYDROCHLORIDE [Concomitant]
     Indication: BREAKTHROUGH PAIN
     Route: 065
  4. SCOPOLAMINE [Concomitant]
     Indication: ABDOMINAL PAIN
     Route: 042
  5. DICLOFENAC [Concomitant]
     Route: 065
  6. METAMIZOL [Concomitant]
     Route: 065

REACTIONS (3)
  - NARCOTIC INTOXICATION [None]
  - RENAL FAILURE ACUTE [None]
  - SEDATION [None]
